FAERS Safety Report 14590577 (Version 3)
Quarter: 2019Q1

REPORT INFORMATION
  Report Type: Spontaneous
  Country: US (occurrence: US)
  Receive Date: 20180302
  Receipt Date: 20190214
  Transmission Date: 20190417
  Serious: No
  Sender: FDA-Public Use
  Company Number: US-PFIZER INC-2018085479

PATIENT
  Age: 77 Year
  Sex: Female

DRUGS (9)
  1. HYDROCHLOROTHIAZIDE. [Concomitant]
     Active Substance: HYDROCHLOROTHIAZIDE
     Dosage: 25 MG, 1X/DAY (AM) (STARTED 16 YEARS)
  2. ATORVASTATIN [Concomitant]
     Active Substance: ATORVASTATIN
     Dosage: 40 MG, 1X/DAY (PM) (STARTED 20 YEARS BEFORE)
  3. LISINOPRIL. [Concomitant]
     Active Substance: LISINOPRIL
     Dosage: 10 MG, 1X/DAY (AM) (STARTED ABOUT 16 YEARS)
  4. BABY ASPIRIN [Concomitant]
     Active Substance: ASPIRIN
     Dosage: UNK, DAILY
  5. VITAMIN B12 [Concomitant]
     Active Substance: CYANOCOBALAMIN
     Dosage: UNK, DAILY (200)
  6. IBRANCE [Suspect]
     Active Substance: PALBOCICLIB
     Indication: BREAST CANCER FEMALE
     Dosage: 125 MG, CYCLIC (ONCE A DAY)
     Dates: start: 20171211
  7. POTASSIUM CHLORIDE. [Concomitant]
     Active Substance: POTASSIUM CHLORIDE
     Dosage: 10 MG, 1X/DAY (AM) (STARTED 6 YEARS BEFORE)
  8. FEMARA [Concomitant]
     Active Substance: LETROZOLE
     Dosage: 25 MG, UNK
     Dates: start: 20171211
  9. VITAMIN D3 [Concomitant]
     Active Substance: CHOLECALCIFEROL
     Dosage: UNK, DAILY (200)

REACTIONS (3)
  - Pain in extremity [Not Recovered/Not Resolved]
  - Madarosis [Unknown]
  - Alopecia [Unknown]
